FAERS Safety Report 7420985-9 (Version None)
Quarter: 2011Q2

REPORT INFORMATION
  Report Type: 
  Country: None (occurrence: None)
  Receive Date: 20110418
  Receipt Date: 20110405
  Transmission Date: 20111010
  Serious: Yes (Other)
  Sender: FDA-Public Use
  Company Number: AU-ROCHE-756385

PATIENT
  Age: 99 Year
  Sex: Male

DRUGS (8)
  1. CYCLOPHOSPHAMIDE [Suspect]
     Route: 065
     Dates: start: 20101014
  2. DOXORUBICIN HCL [Suspect]
     Route: 065
     Dates: start: 20101014
  3. PREDNISOLONE [Concomitant]
  4. NEULASTA [Suspect]
     Dosage: FORM: SOLUTION FOR INJECTION IN PRE-FILLED SYRINGE. INDICATION REPORTED AS CHEMOTHERAPY.
     Route: 058
     Dates: start: 20101015
  5. DEXAMETHASONE [Concomitant]
     Dates: start: 20101014
  6. KYTRIL [Suspect]
     Route: 065
     Dates: start: 20101014
  7. VINCRISTINE [Suspect]
     Route: 065
     Dates: start: 20101014
  8. RITUXIMAB [Concomitant]
     Dates: start: 20101014

REACTIONS (2)
  - DRUG INEFFECTIVE [None]
  - NEUTROPENIA [None]
